FAERS Safety Report 6639711-6 (Version None)
Quarter: 2010Q1

REPORT INFORMATION
  Report Type: 
  Country: None (occurrence: None)
  Receive Date: 20100318
  Receipt Date: 20100304
  Transmission Date: 20100710
  Serious: Yes (Hospitalization, Other)
  Sender: FDA-Public Use
  Company Number: PHHY2010DE15326

PATIENT
  Age: 69 Year
  Sex: Male
  Weight: 100 kg

DRUGS (27)
  1. MYFORTIC [Suspect]
     Indication: RENAL TRANSPLANT
     Dosage: UNK
     Dates: start: 20060101
  2. MYFORTIC [Suspect]
     Dosage: 360 MG, BID
     Route: 048
     Dates: start: 20091109
  3. MYFORTIC [Suspect]
     Dosage: 360 MG/DAY
  4. CARBAMAZEPINE [Suspect]
     Dosage: 200 MG, BID
     Route: 048
     Dates: start: 20091109, end: 20091112
  5. CARBAMAZEPINE [Suspect]
     Dosage: UNK
  6. TACROLIMUS [Suspect]
     Indication: RENAL TRANSPLANT
     Dosage: 2.5 MG, QD
     Route: 048
     Dates: start: 20060101
  7. VALTREX [Suspect]
     Indication: HERPES ZOSTER
     Dosage: 1000 MG, TID
     Route: 048
     Dates: start: 20091109
  8. VALTREX [Suspect]
     Dosage: 500
     Dates: end: 20091113
  9. METOHEXAL [Concomitant]
     Indication: HYPERTENSION
     Dosage: 47.5 MG, BID
     Route: 048
     Dates: start: 20020101
  10. DILTIAZEM HCL [Concomitant]
     Dosage: UNK
     Dates: start: 20040101
  11. DILTIAZEM ^RATIOPHARM^ [Concomitant]
     Indication: HYPERTENSION
     Dosage: 90 MG, QD
     Dates: start: 20040101
  12. TORASEMIDE [Concomitant]
     Indication: HYPERTENSION
     Dosage: 25 MG, QD
     Route: 048
     Dates: start: 20040101
  13. LOCOL [Concomitant]
     Indication: HYPERCHOLESTEROLAEMIA
     Dosage: 80 MG, QD
     Route: 048
     Dates: start: 20021201
  14. CALCITRIOL [Concomitant]
     Indication: OSTEOPENIA
     Dosage: 0.25 UG, UNK
     Route: 048
     Dates: start: 20040101
  15. DIOVAN [Concomitant]
     Indication: HYPERTENSION
     Dosage: 320 MG, QD
     Route: 048
     Dates: start: 20040101
  16. LYRICA [Concomitant]
     Indication: PAIN
     Dosage: 150 MG, BID
     Route: 048
     Dates: start: 20080101
  17. DIPYRONE TAB [Concomitant]
     Indication: PAIN
     Dosage: 30 GTT, QD
     Route: 048
     Dates: start: 20080101
  18. MCP ^HEXAL^ [Concomitant]
     Indication: ABDOMINAL DISTENSION
     Dosage: 10 MG, TID
     Route: 048
     Dates: start: 20080101
  19. MEDYN FORTE [Concomitant]
     Indication: NEPHROGENIC ANAEMIA
     Dosage: 1 DF, BID
     Route: 048
     Dates: start: 20080101
  20. OMEPRAZOLE [Concomitant]
     Indication: PROPHYLAXIS AGAINST GASTROINTESTINAL ULCER
     Dosage: 40 MG, BID
     Route: 048
  21. EZETROL [Concomitant]
     Indication: HYPERCHOLESTEROLAEMIA
     Dosage: UNK
     Route: 048
     Dates: start: 20060101
  22. ASPIRIN [Concomitant]
     Indication: CARDIOVASCULAR EVENT PROPHYLAXIS
     Dosage: 100 MG, QD
     Route: 048
     Dates: start: 20020101
  23. ROCEPHIN [Concomitant]
     Dosage: 2 G, QD
     Route: 042
  24. ACIC [Concomitant]
     Dosage: 500 MG, BID
     Route: 042
  25. ACETYLCYSTEINE [Concomitant]
     Dosage: 600 ONCE DAILY
  26. SPIRIVA [Concomitant]
  27. VALORON [Concomitant]

REACTIONS (20)
  - ALTERED STATE OF CONSCIOUSNESS [None]
  - BRONCHITIS [None]
  - C-REACTIVE PROTEIN INCREASED [None]
  - CHEST DISCOMFORT [None]
  - CONFUSIONAL STATE [None]
  - COUGH [None]
  - DISORIENTATION [None]
  - DIZZINESS [None]
  - DYSPNOEA [None]
  - EPSTEIN-BARR VIRUS INFECTION [None]
  - GAIT DISTURBANCE [None]
  - GAMMA-GLUTAMYLTRANSFERASE INCREASED [None]
  - HERPES ZOSTER [None]
  - INFECTION [None]
  - OVERDOSE [None]
  - PNEUMONIA VIRAL [None]
  - POLYNEUROPATHY [None]
  - PROSTATECTOMY [None]
  - SOMNOLENCE [None]
  - SPEECH DISORDER [None]
